FAERS Safety Report 4983545-5 (Version None)
Quarter: 2006Q2

REPORT INFORMATION
  Report Type: 
  Country: None (occurrence: None)
  Receive Date: 20060419
  Receipt Date: 20060403
  Transmission Date: 20061013
  Serious: Yes (Hospitalization, Disabling, Other)
  Sender: FDA-Public Use
  Company Number: 2006EU000174

PATIENT
  Age: 4 Year
  Sex: Male

DRUGS (3)
  1. TACROLIMUS CAPSULES (TACROLIMUS) CAPSULE [Suspect]
     Indication: RENAL TRANSPLANT
     Dosage: 2.5 MG, D, ORAL; 1 MG, BID, ORAL
     Route: 048
     Dates: start: 20040701
  2. PREDNISOLONE [Concomitant]
  3. MAGNESIUM  (MAGNESIUM) [Concomitant]

REACTIONS (5)
  - BLINDNESS [None]
  - CONDITION AGGRAVATED [None]
  - INTRACRANIAL PRESSURE INCREASED [None]
  - OPTIC ATROPHY [None]
  - OPTIC NEUROPATHY [None]
